FAERS Safety Report 6335153-1 (Version None)
Quarter: 2009Q3

REPORT INFORMATION
  Report Type: 
  Country: None (occurrence: None)
  Receive Date: 20090826
  Receipt Date: 20090722
  Transmission Date: 20100115
  Serious: Yes (Disabling)
  Sender: FDA-Public Use
  Company Number: 2009008828

PATIENT
  Age: 54 Year
  Sex: Male

DRUGS (1)
  1. MODAFINIL [Suspect]
     Indication: SLEEP APNOEA SYNDROME
     Dosage: 5 IN 1 D, ORAL

REACTIONS (2)
  - DYSKINESIA [None]
  - JOINT STIFFNESS [None]
